FAERS Safety Report 15573289 (Version 1)
Quarter: 2018Q4

REPORT INFORMATION
  Report Type: Spontaneous
  Country: US (occurrence: US)
  Receive Date: 20181101
  Receipt Date: 20181101
  Transmission Date: 20190205
  Serious: No
  Sender: FDA-Public Use
  Company Number: US-IPSEN BIOPHARMACEUTICALS, INC.-2018-16588

PATIENT
  Sex: Male

DRUGS (8)
  1. CRESTOR [Concomitant]
     Active Substance: ROSUVASTATIN CALCIUM
  2. CREON [Concomitant]
     Active Substance: PANCRELIPASE AMYLASE\PANCRELIPASE LIPASE\PANCRELIPASE PROTEASE
  3. VITAMIN D [Concomitant]
     Active Substance: CHOLECALCIFEROL
  4. KLONOPIN [Concomitant]
     Active Substance: CLONAZEPAM
  5. SAW PALMETTO [Concomitant]
     Active Substance: HERBALS\SAW PALMETTO
  6. LISINOPRIL. [Concomitant]
     Active Substance: LISINOPRIL
  7. XERMELO [Suspect]
     Active Substance: TELOTRISTAT ETHYL
     Indication: CARCINOID TUMOUR OF THE APPENDIX
     Route: 048
     Dates: start: 20170420
  8. ATENOLOL. [Concomitant]
     Active Substance: ATENOLOL

REACTIONS (1)
  - Rash [Recovering/Resolving]
